FAERS Safety Report 5115725-2 (Version None)
Quarter: 2006Q3

REPORT INFORMATION
  Report Type: 
  Country: None (occurrence: None)
  Receive Date: 20060927
  Receipt Date: 20060622
  Transmission Date: 20061208
  Serious: Yes (Death)
  Sender: FDA-Public Use
  Company Number: US-ROCHE-452915

PATIENT
  Age: 29 Year
  Sex: Male
  Weight: 90.7 kg

DRUGS (5)
  1. PEGASYS [Suspect]
     Indication: HEPATITIS C
     Route: 058
     Dates: start: 20050919, end: 20051123
  2. PEGASYS [Suspect]
     Route: 058
     Dates: start: 20060301, end: 20060314
  3. COPEGUS [Suspect]
     Indication: HEPATITIS C
     Dosage: DOSAGE REPORTED AS 400 MG+ 600 MG / DAY.
     Route: 048
     Dates: start: 20050919, end: 20051123
  4. COPEGUS [Suspect]
     Route: 048
     Dates: start: 20060301, end: 20060314
  5. METHADONE HCL [Suspect]
     Indication: DRUG USE FOR UNKNOWN INDICATION
     Route: 065

REACTIONS (1)
  - OVERDOSE [None]
